FAERS Safety Report 25251327 (Version 1)
Quarter: 2025Q2

REPORT INFORMATION
  Report Type: Spontaneous
  Country: SI (occurrence: SI)
  Receive Date: 20250429
  Receipt Date: 20250429
  Transmission Date: 20250717
  Serious: Yes (Other)
  Sender: ALNYLAM PHARMACEUTICALS
  Company Number: SI-ALNYLAM PHARMACEUTICALS, INC.-ALN-2025-002833

PATIENT

DRUGS (1)
  1. AMVUTTRA [Suspect]
     Active Substance: VUTRISIRAN
     Indication: Hereditary neuropathic amyloidosis
     Route: 065

REACTIONS (3)
  - Cardiac failure [Unknown]
  - Foot fracture [Unknown]
  - Bronchitis [Unknown]
